FAERS Safety Report 26194541 (Version 1)
Quarter: 2025Q4

REPORT INFORMATION
  Report Type: Spontaneous
  Country: CN (occurrence: CN)
  Receive Date: 20251224
  Receipt Date: 20251224
  Transmission Date: 20260118
  Serious: Yes (Other)
  Sender: JIANGSU HENGRUI
  Company Number: CN-JIANGSU HENGRUI PHARMACEUTICALS CO., LTD.-H2025245968

PATIENT
  Age: 46 Year
  Weight: 85 kg

DRUGS (1)
  1. IODIXANOL [Suspect]
     Active Substance: IODIXANOL
     Indication: Angiogram
     Dosage: 32 ML, ST

REACTIONS (2)
  - Skin induration [Recovered/Resolved]
  - Rash [Recovered/Resolved]
